FAERS Safety Report 13963984 (Version 1)
Quarter: 2017Q3

REPORT INFORMATION
  Report Type: Spontaneous
  Country: PE (occurrence: PE)
  Receive Date: 20170913
  Receipt Date: 20170913
  Transmission Date: 20171128
  Serious: Yes (Other)
  Sender: FDA-Public Use
  Company Number: PE-ROCHE-1992126

PATIENT
  Sex: Female

DRUGS (2)
  1. XOLAIR [Suspect]
     Active Substance: OMALIZUMAB
     Indication: ASTHMA
     Dosage: (2 EVERY 3 MONTHS)
     Route: 065
  2. XOLAIR [Suspect]
     Active Substance: OMALIZUMAB
     Dosage: 150 MG, QMO
     Route: 065

REACTIONS (5)
  - Influenza [Recovering/Resolving]
  - Malaise [Recovering/Resolving]
  - Bronchial disorder [Recovering/Resolving]
  - Asthmatic crisis [Recovering/Resolving]
  - Inappropriate schedule of drug administration [Unknown]
